FAERS Safety Report 8902619 (Version 1)
Quarter: 2012Q4

REPORT INFORMATION
  Report Type: 
  Country: US (occurrence: US)
  Receive Date: 20121112
  Receipt Date: 20121112
  Transmission Date: 20130627
  Serious: Yes (Other)
  Sender: FDA-Public Use
  Company Number: US-PFIZER INC-2012281491

PATIENT
  Age: 57 Year
  Sex: Female
  Weight: 68.03 kg

DRUGS (4)
  1. CHANTIX [Suspect]
     Indication: SMOKING CESSATION THERAPY
     Dosage: 0.5 mg, daily
     Dates: start: 201207
  2. CHANTIX [Suspect]
     Dosage: 1 mg, 2x/day
     Dates: end: 201208
  3. METOPROLOL [Concomitant]
     Indication: HYPERTENSION
     Dosage: 50 mg, daily
  4. CRESTOR [Concomitant]
     Indication: HIGH CHOLESTEROL
     Dosage: 10 mg, daily
     Dates: start: 2002

REACTIONS (4)
  - Upper respiratory tract infection [Recovered/Resolved]
  - Influenza [Recovered/Resolved]
  - Vomiting [Recovered/Resolved]
  - Malaise [Recovered/Resolved]
